FAERS Safety Report 11188671 (Version 2)
Quarter: 2015Q2

REPORT INFORMATION
  Report Type: Spontaneous
  Country: US (occurrence: US)
  Receive Date: 20150615
  Receipt Date: 20150616
  Transmission Date: 20150821
  Serious: No
  Sender: FDA-Public Use
  Company Number: US-009507513-1505USA008034

PATIENT
  Age: 19 Year
  Sex: Female
  Weight: 145.58 kg

DRUGS (1)
  1. IMPLANON [Suspect]
     Active Substance: ETONOGESTREL
     Indication: CONTRACEPTION
     Dosage: 1 ROD 3 YEARS, RIGHT ARM
     Route: 059
     Dates: start: 20120501, end: 20150521

REACTIONS (3)
  - Incorrect drug administration duration [Unknown]
  - Pain in extremity [Unknown]
  - Amenorrhoea [Unknown]

NARRATIVE: CASE EVENT DATE: 20120501
